FAERS Safety Report 19783307 (Version 1)
Quarter: 2021Q3

REPORT INFORMATION
  Report Type: Other
  Country: EG (occurrence: EG)
  Receive Date: 20210903
  Receipt Date: 20210903
  Transmission Date: 20211014
  Serious: Yes (Other)
  Sender: FDA-Public Use
  Company Number: EG-ROCHE-2903440

PATIENT

DRUGS (1)
  1. CAPECITABINE. [Suspect]
     Active Substance: CAPECITABINE
     Indication: BREAST CANCER METASTATIC
     Dosage: FOR 14 DAYS FOLLOWED BY 1 WEEK REST
     Route: 048

REACTIONS (7)
  - Palmar-plantar erythrodysaesthesia syndrome [Unknown]
  - Diarrhoea [Unknown]
  - Anaemia [Unknown]
  - Neutropenia [Unknown]
  - Stomatitis [Unknown]
  - Fatigue [Unknown]
  - Nausea [Unknown]
